FAERS Safety Report 20033556 (Version 1)
Quarter: 2021Q4

REPORT INFORMATION
  Report Type: Spontaneous
  Country: ID (occurrence: ID)
  Receive Date: 20211104
  Receipt Date: 20211104
  Transmission Date: 20220303
  Serious: Yes (Other)
  Sender: FDA-Public Use
  Company Number: ID-NOVARTISPH-NVSC2021ID248249

PATIENT

DRUGS (1)
  1. TASIGNA [Suspect]
     Active Substance: NILOTINIB
     Indication: Chronic myeloid leukaemia
     Dosage: 200 MG
     Route: 065

REACTIONS (4)
  - Polycythaemia [Unknown]
  - Haemoglobin decreased [Unknown]
  - Red cell distribution width decreased [Unknown]
  - Haematocrit decreased [Unknown]
